FAERS Safety Report 6992708-9 (Version None)
Quarter: 2010Q3

REPORT INFORMATION
  Report Type: 
  Country: None (occurrence: None)
  Receive Date: 20100916
  Receipt Date: 20100916
  Transmission Date: 20110219
  Serious: Yes (Hospitalization, Disabling, Other)
  Sender: FDA-Public Use
  Company Number: None

PATIENT
  Sex: Female
  Weight: 73.6 kg

DRUGS (1)
  1. FUROSEMIDE 20 MG UNKNOWN [Suspect]
     Indication: OEDEMA PERIPHERAL
     Dosage: FUROSEMIDE 20 MG. ORAL 047
     Route: 048
     Dates: start: 20071213

REACTIONS (7)
  - DEAFNESS NEUROSENSORY [None]
  - DEAFNESS UNILATERAL [None]
  - EAR CONGESTION [None]
  - EAR DISCOMFORT [None]
  - EAR PAIN [None]
  - HYPOACUSIS [None]
  - SUDDEN HEARING LOSS [None]
